FAERS Safety Report 16840316 (Version 3)
Quarter: 2019Q4

REPORT INFORMATION
  Report Type: Spontaneous
  Country: AT (occurrence: AT)
  Receive Date: 20190923
  Receipt Date: 20191101
  Transmission Date: 20200122
  Serious: Yes (Life-Threatening)
  Sender: FDA-Public Use
  Company Number: PHHY2019AT219037

PATIENT
  Age: 14 Year
  Sex: Male
  Weight: 67 kg

DRUGS (11)
  1. FORTECORTIN [Concomitant]
     Active Substance: DEXAMETHASONE
     Indication: ACUTE LYMPHOCYTIC LEUKAEMIA
     Dosage: UNK (3 X TGL)
     Route: 065
     Dates: start: 20190709, end: 20190711
  2. EUSAPRIM FORTE [Concomitant]
     Active Substance: SULFAMETHOXAZOLE\TRIMETHOPRIM
     Indication: PRODUCT USED FOR UNKNOWN INDICATION
     Dosage: UNK (2 X 1)
     Route: 065
     Dates: start: 20190416
  3. VINCRISTINE SULFATE. [Concomitant]
     Active Substance: VINCRISTINE SULFATE
     Indication: ACUTE LYMPHOCYTIC LEUKAEMIA
     Dosage: 2 MG, UNK
     Route: 065
     Dates: start: 20190709
  4. AMPHO-MORONAL [Concomitant]
     Active Substance: AMPHOTERICIN B
     Indication: PRODUCT USED FOR UNKNOWN INDICATION
     Dosage: UNK (3 X 2 ML)
     Route: 048
     Dates: start: 20190416
  5. HUMATIN [Concomitant]
     Active Substance: PAROMOMYCIN SULFATE
     Indication: PRODUCT USED FOR UNKNOWN INDICATION
     Dosage: UNK (3 X 2 KPS)
     Route: 048
     Dates: start: 20190416
  6. PANTOLOC [Concomitant]
     Active Substance: PANTOPRAZOLE SODIUM
     Indication: PRODUCT USED FOR UNKNOWN INDICATION
     Dosage: UNK (1 X 1)
     Route: 065
     Dates: start: 20190709, end: 20190711
  7. EBETREXAT 100 MG/ML - KONZENTRAT ZUR INFUSIONSBEREITUNG [Suspect]
     Active Substance: METHOTREXATE SODIUM
     Indication: ACUTE LYMPHOCYTIC LEUKAEMIA
     Dosage: 5 G/M2
     Route: 065
     Dates: start: 20190709, end: 20190710
  8. TRAMABENE [Concomitant]
     Active Substance: TRAMADOL
     Indication: PAIN
     Dosage: UNK
     Route: 042
     Dates: start: 20190709
  9. SUCRALAN [Concomitant]
     Indication: PRODUCT USED FOR UNKNOWN INDICATION
     Dosage: UNK (3 X 5ML)
     Route: 065
     Dates: start: 20190709, end: 20190711
  10. MESNA. [Concomitant]
     Active Substance: MESNA
     Indication: PRODUCT USED FOR UNKNOWN INDICATION
     Dosage: 70 MG/M2, UNK
     Route: 065
     Dates: start: 20190710
  11. CYCLOPHOSPHAMIDE. [Concomitant]
     Active Substance: CYCLOPHOSPHAMIDE
     Indication: ACUTE LYMPHOCYTIC LEUKAEMIA
     Dosage: 200 MG/M2, UNK
     Route: 065
     Dates: start: 20190710

REACTIONS (2)
  - Suspected product quality issue [Unknown]
  - Poisoning [Unknown]

NARRATIVE: CASE EVENT DATE: 20190711
